FAERS Safety Report 6738204-5 (Version None)
Quarter: 2010Q2

REPORT INFORMATION
  Report Type: 
  Country: None (occurrence: None)
  Receive Date: 20100524
  Receipt Date: 20100514
  Transmission Date: 20101027
  Serious: Yes (Hospitalization)
  Sender: FDA-Public Use
  Company Number: A0761194A

PATIENT
  Age: 50 Year
  Sex: Female
  Weight: 104.5 kg

DRUGS (16)
  1. AVANDIA [Suspect]
     Dosage: 4MG TWICE PER DAY
     Route: 048
     Dates: start: 20030101, end: 20061201
  2. AVANDAMET [Suspect]
     Route: 048
     Dates: start: 20060801, end: 20061201
  3. MEGESTROL ACETATE [Concomitant]
  4. ZOLPIDEM [Concomitant]
  5. ZOCOR [Concomitant]
  6. LASIX [Concomitant]
  7. METFORMIN [Concomitant]
  8. VYTORIN [Concomitant]
  9. ASPIRIN [Concomitant]
  10. MECLIZINE [Concomitant]
  11. WELLBUTRIN XL [Concomitant]
  12. NORVASC [Concomitant]
  13. BENICAR [Concomitant]
  14. GLIPIZIDE [Concomitant]
  15. ACIPHEX [Concomitant]
  16. GLIMEPIRIDE [Concomitant]

REACTIONS (3)
  - CORONARY ARTERY DISEASE [None]
  - ISCHAEMIC CARDIOMYOPATHY [None]
  - MYOCARDIAL INFARCTION [None]
